FAERS Safety Report 5204808-4 (Version None)
Quarter: 2007Q1

REPORT INFORMATION
  Report Type: 
  Country: None (occurrence: None)
  Receive Date: 20070110
  Receipt Date: 20060719
  Transmission Date: 20070707
  Serious: No
  Sender: FDA-Public Use
  Company Number: US-BRISTOL-MYERS SQUIBB COMPANY-13452669

PATIENT
  Sex: Male

DRUGS (3)
  1. ABILIFY [Suspect]
  2. LITHIUM CARBONATE [Concomitant]
  3. DEPAKOTE [Concomitant]

REACTIONS (2)
  - EJACULATION FAILURE [None]
  - SEXUAL DYSFUNCTION [None]
